FAERS Safety Report 9830889 (Version 1)
Quarter: 2014Q1

REPORT INFORMATION
  Report Type: Report from Study
  Country: AR (occurrence: AR)
  Receive Date: 20140120
  Receipt Date: 20140120
  Transmission Date: 20141002
  Serious: Yes (Death)
  Sender: FDA-Public Use
  Company Number: PHHY2014AR005168

PATIENT
  Sex: 0

DRUGS (1)
  1. LEPONEX / CLOZARIL [Suspect]
     Indication: SCHIZOPHRENIA
     Dosage: 500 UKN, DAILY
     Route: 048

REACTIONS (1)
  - Acute myocardial infarction [Fatal]
